FAERS Safety Report 24941567 (Version 2)
Quarter: 2025Q1

REPORT INFORMATION
  Report Type: Spontaneous
  Country: CA (occurrence: CA)
  Receive Date: 20250207
  Receipt Date: 20250317
  Transmission Date: 20250408
  Serious: Yes (Hospitalization, Other)
  Sender: ACCORD
  Company Number: None

PATIENT
  Age: 52 Year
  Sex: Female

DRUGS (9)
  1. QUETIAPINE FUMARATE [Suspect]
     Active Substance: QUETIAPINE FUMARATE
     Indication: Psychotic disorder
     Route: 048
  2. ACETAMINOPHEN [Suspect]
     Active Substance: ACETAMINOPHEN
     Indication: Pain in extremity
  3. APTIVUS [Suspect]
     Active Substance: TIPRANAVIR
     Indication: HIV infection
  4. CLONAZEPAM [Suspect]
     Active Substance: CLONAZEPAM
     Indication: Hypomania
  5. DIAZEPAM [Suspect]
     Active Substance: DIAZEPAM
     Indication: HIV infection
  6. OLANZAPINE [Suspect]
     Active Substance: OLANZAPINE
     Indication: Product used for unknown indication
  7. ABACAVIR SULFATE [Concomitant]
     Active Substance: ABACAVIR SULFATE
  8. LAMIVUDINE [Concomitant]
     Active Substance: LAMIVUDINE
  9. ACETAMINOPHEN [Concomitant]
     Active Substance: ACETAMINOPHEN

REACTIONS (8)
  - Schizophrenia [Unknown]
  - Hypomania [Unknown]
  - Vomiting [Unknown]
  - Cholelithiasis [Unknown]
  - Pain in extremity [Unknown]
  - Nausea [Unknown]
  - Pneumonia [Unknown]
  - Off label use [Unknown]
